FAERS Safety Report 7720125-2 (Version None)
Quarter: 2011Q3

REPORT INFORMATION
  Report Type: 
  Country: None (occurrence: None)
  Receive Date: 20110824
  Receipt Date: 20110809
  Transmission Date: 20111222
  Serious: Yes (Death, Other)
  Sender: FDA-Public Use
  Company Number: 2011MA011584

PATIENT
  Age: 27 Year
  Sex: Male

DRUGS (8)
  1. MITRAGYNINE (NO PREF. NAME) [Suspect]
     Indication: TOXICITY TO VARIOUS AGENTS
     Dosage: 0.18 UG/G ON AUTOPSY
  2. TRIMEPRAZINE TARTRATE [Suspect]
     Indication: TOXICITY TO VARIOUS AGENTS
     Dosage: 0.2 UG/G ON AUTOPSY
  3. VENLAFAXINE [Suspect]
     Indication: TOXICITY TO VARIOUS AGENTS
     Dosage: 0.1 UG/G ON AUTOPSY
  4. BUPRENORPHINE [Suspect]
     Indication: TOXICITY TO VARIOUS AGENTS
     Dosage: 0.0004 UG/G ON AUTOPSY
  5. TRAMADOL HYDROCHLORIDE [Suspect]
     Indication: TOXICITY TO VARIOUS AGENTS
     Dosage: 4.3 UG/G ON AUTOPSY
  6. MIRTAZAPINE [Suspect]
     Indication: TOXICITY TO VARIOUS AGENTS
     Dosage: 0.1 UG/G ON AUTOPSY
  7. DIAZEPAM [Suspect]
     Dosage: 0.09 UG/G ON AUTOPSY
  8. NORDIAZEPAM (NO PREF. NAME) [Suspect]
     Indication: TOXICITY TO VARIOUS AGENTS
     Dosage: 0.2 UG/G ON AUTOPSY

REACTIONS (5)
  - LOSS OF CONSCIOUSNESS [None]
  - CARDIAC ARREST [None]
  - BRAIN OEDEMA [None]
  - TOXICITY TO VARIOUS AGENTS [None]
  - PULMONARY OEDEMA [None]
